FAERS Safety Report 5772368-5 (Version None)
Quarter: 2008Q2

REPORT INFORMATION
  Report Type: 
  Country: None (occurrence: None)
  Receive Date: 20080613
  Receipt Date: 20080530
  Transmission Date: 20081010
  Serious: No
  Sender: FDA-Public Use
  Company Number: US-BAYER-200824121NA

PATIENT
  Age: 70 Year
  Sex: Female

DRUGS (1)
  1. MAGNEVIST [Suspect]
     Indication: NUCLEAR MAGNETIC RESONANCE IMAGING BRAIN
     Dosage: TOTAL DAILY DOSE: 10 ML  UNIT DOSE: 20 ML
     Route: 042
     Dates: start: 20070806, end: 20070806

REACTIONS (3)
  - DIZZINESS [None]
  - DYSPHAGIA [None]
  - NASAL CONGESTION [None]
